FAERS Safety Report 13179059 (Version 1)
Quarter: 2017Q1

REPORT INFORMATION
  Report Type: Report from Study
  Country: US (occurrence: US)
  Receive Date: 20170202
  Receipt Date: 20170202
  Transmission Date: 20170428
  Serious: No
  Sender: FDA-Public Use
  Company Number: PHEH2017US003287

PATIENT
  Age: 59 Year
  Sex: Female

DRUGS (1)
  1. SANDOSTATIN [Suspect]
     Active Substance: OCTREOTIDE ACETATE
     Indication: PRODUCT USED FOR UNKNOWN INDICATION
     Route: 065

REACTIONS (5)
  - Joint stiffness [Unknown]
  - Arthralgia [Unknown]
  - Abdominal discomfort [Unknown]
  - Nausea [Unknown]
  - Back pain [Unknown]

NARRATIVE: CASE EVENT DATE: 20170127
